FAERS Safety Report 5436000-2 (Version None)
Quarter: 2007Q3

REPORT INFORMATION
  Report Type: 
  Country: None (occurrence: None)
  Receive Date: 20070831
  Receipt Date: 20070828
  Transmission Date: 20080115
  Serious: Yes (Other)
  Sender: FDA-Public Use
  Company Number: A0677023A

PATIENT
  Age: 60 Year
  Sex: Female

DRUGS (3)
  1. AVANDAMET [Suspect]
     Dosage: 2TAB TWICE PER DAY
     Route: 048
     Dates: start: 20070825
  2. SYNTHROID [Concomitant]
  3. PRONEB [Concomitant]

REACTIONS (9)
  - AORTIC VALVE INCOMPETENCE [None]
  - BLOOD GLUCOSE INCREASED [None]
  - CARDIAC FLUTTER [None]
  - COUGH [None]
  - FEELING ABNORMAL [None]
  - INFLUENZA [None]
  - PYREXIA [None]
  - THERAPEUTIC RESPONSE DECREASED [None]
  - TREATMENT NONCOMPLIANCE [None]
